FAERS Safety Report 8785124 (Version 2)
Quarter: 2013Q1

REPORT INFORMATION
  Report Type: Spontaneous
  Country: US (occurrence: US)
  Receive Date: 20120914
  Receipt Date: 20121015
  Transmission Date: 20140127
  Serious: Yes (Hospitalization)
  Sender: FDA-Public Use
  Company Number: US-ASTRAZENECA-2012SE69853

PATIENT
  Age: 54 Year
  Sex: Female
  Weight: 62.6 kg

DRUGS (5)
  1. METOPROLOL [Suspect]
     Indication: HYPOTENSION
     Route: 048
  2. METOPROLOL [Suspect]
     Indication: ORTHOSTATIC HYPOTENSION
     Route: 048
  3. ZOMIG [Suspect]
     Indication: MIGRAINE
     Route: 048
     Dates: start: 20120807, end: 20120807
  4. CLONAZEPAM [Concomitant]
     Indication: ANXIETY
     Dosage: 0.50MG HALF TABLET TWO TO THREE TIMES A DAY AS NEEDED
     Route: 048
  5. CRMBIR [Concomitant]

REACTIONS (4)
  - Hemiplegia [Unknown]
  - Angina pectoris [Unknown]
  - Muscular weakness [Unknown]
  - Chest discomfort [Recovered/Resolved]
